FAERS Safety Report 9334645 (Version 1)
Quarter: 2013Q2

REPORT INFORMATION
  Report Type: Spontaneous
  Country: US (occurrence: US)
  Receive Date: 20130606
  Receipt Date: 20130606
  Transmission Date: 20140414
  Serious: No
  Sender: FDA-Public Use
  Company Number: US-AMGEN-USASP2013015476

PATIENT
  Age: 78 Year
  Sex: Female

DRUGS (11)
  1. PROLIA [Suspect]
     Indication: PRODUCT USED FOR UNKNOWN INDICATION
     Dosage: UNK
  2. MECLIZINE                          /00072801/ [Concomitant]
  3. METOPROLOL [Concomitant]
  4. AMBIEN [Concomitant]
  5. SIMVASTATIN [Concomitant]
  6. PANTOPRAZOLE [Concomitant]
  7. VITAMIN D                          /00107901/ [Concomitant]
  8. CALCIUM [Concomitant]
  9. MULTIVITAMIN                       /00097801/ [Concomitant]
  10. FISH OIL [Concomitant]
  11. PRESERVISION [Concomitant]

REACTIONS (1)
  - Groin pain [Unknown]
